FAERS Safety Report 4764413-0 (Version None)
Quarter: 2005Q3

REPORT INFORMATION
  Report Type: 
  Country: None (occurrence: None)
  Receive Date: 20050906
  Receipt Date: 20050825
  Transmission Date: 20060218
  Serious: Yes (Other)
  Sender: FDA-Public Use
  Company Number: 2005120900

PATIENT
  Age: 62 Year
  Sex: Male

DRUGS (4)
  1. NORVASC [Suspect]
     Indication: HYPERTENSION
  2. ALTACE [Suspect]
     Indication: HYPERTENSION
  3. FERRLECIT [Concomitant]
  4. EPOGEN [Concomitant]

REACTIONS (3)
  - HAEMORRHAGE [None]
  - HYPERKALAEMIA [None]
  - PURPURA [None]
